FAERS Safety Report 19002199 (Version 2)
Quarter: 2022Q3

REPORT INFORMATION
  Report Type: Spontaneous
  Country: US (occurrence: US)
  Receive Date: 20210312
  Receipt Date: 20220912
  Transmission Date: 20221026
  Serious: Yes (Death, Other)
  Sender: FDA-Public Use
  Company Number: US-SA-SAC20210309000584

PATIENT
  Age: 56 Year
  Sex: Male

DRUGS (1)
  1. ZANTAC [Suspect]
     Active Substance: RANITIDINE HYDROCHLORIDE
     Indication: Dyspepsia
     Dosage: 75 MG, QD
     Route: 065
     Dates: start: 199801, end: 201801

REACTIONS (4)
  - Bladder cancer stage IV [Fatal]
  - Hepatic cancer [Fatal]
  - Prostate cancer [Unknown]
  - Urethral cancer [Unknown]

NARRATIVE: CASE EVENT DATE: 20180101
